FAERS Safety Report 8014460-0 (Version None)
Quarter: 2011Q4

REPORT INFORMATION
  Report Type: 
  Country: None (occurrence: None)
  Receive Date: 20111229
  Receipt Date: 20111222
  Transmission Date: 20120403
  Serious: Yes (Other)
  Sender: FDA-Public Use
  Company Number: PHHY2011AR112219

PATIENT
  Sex: Female

DRUGS (1)
  1. DIOVAN [Suspect]
     Indication: BLOOD PRESSURE INADEQUATELY CONTROLLED
     Dosage: 160 MG, DAILY

REACTIONS (4)
  - OSTEOPOROSIS [None]
  - EXOSTOSIS [None]
  - SPINAL DEFORMITY [None]
  - CATARACT [None]
